FAERS Safety Report 22084515 (Version 1)
Quarter: 2023Q1

REPORT INFORMATION
  Report Type: Spontaneous
  Country: US (occurrence: None)
  Receive Date: 20230309
  Receipt Date: 20230309
  Transmission Date: 20230418
  Serious: Yes (Other)
  Sender: FDA-Public Use
  Company Number: None

PATIENT
  Sex: Female

DRUGS (2)
  1. BUPRENORPHINE\NALOXONE [Suspect]
     Active Substance: BUPRENORPHINE\NALOXONE
     Indication: Drug use disorder
     Dosage: 8 MG DAILY SUBLINGUAL
     Route: 060
     Dates: start: 20230227, end: 20230309
  2. generic Suboxone tablets [Concomitant]
     Dates: start: 20230227, end: 20230306

REACTIONS (5)
  - Drug intolerance [None]
  - Maternal exposure during pregnancy [None]
  - Nausea [None]
  - Vomiting [None]
  - Product formulation issue [None]
